FAERS Safety Report 8232030-6 (Version None)
Quarter: 2012Q1

REPORT INFORMATION
  Report Type: 
  Country: None (occurrence: None)
  Receive Date: 20120323
  Receipt Date: 20120313
  Transmission Date: 20120608
  Serious: Yes (Congenital Anomaly, Other)
  Sender: FDA-Public Use
  Company Number: DE-TEVA-327904GER

PATIENT
  Age: 0 Year
  Sex: Male

DRUGS (3)
  1. VIMPAT [Suspect]
     Route: 064
     Dates: start: 20091111, end: 20100811
  2. FOLSAURE [Concomitant]
     Route: 064
  3. LAMOTRIGINE [Suspect]
     Route: 064
     Dates: start: 20091111, end: 20100811

REACTIONS (3)
  - COARCTATION OF THE AORTA [None]
  - ATRIAL SEPTAL DEFECT [None]
  - BRADYCARDIA NEONATAL [None]
